FAERS Safety Report 20312974 (Version 1)
Quarter: 2022Q1

REPORT INFORMATION
  Report Type: Other
  Country: None (occurrence: US)
  Receive Date: 20220108
  Receipt Date: 20220108
  Transmission Date: 20220423
  Serious: Yes (Other)
  Sender: FDA-Public Use
  Company Number: US-Taro Pharmaceuticals USA, Inc.-2123749

PATIENT
  Sex: Male

DRUGS (1)
  1. IBUPROFEN [Suspect]
     Active Substance: IBUPROFEN

REACTIONS (4)
  - Glomerulonephritis minimal lesion [None]
  - Abnormal organ growth [None]
  - Lymphoproliferative disorder [None]
  - Tubulointerstitial nephritis [None]
